FAERS Safety Report 5626381-9 (Version None)
Quarter: 2008Q1

REPORT INFORMATION
  Report Type: 
  Country: None (occurrence: None)
  Receive Date: 20080211
  Receipt Date: 20080114
  Transmission Date: 20080703
  Serious: Yes (Hospitalization)
  Sender: FDA-Public Use
  Company Number: 2008S1000658

PATIENT
  Age: 30 Year
  Sex: Female

DRUGS (3)
  1. CITALOPRAM DURA (CITALOPRAM HYDROBROMIDE) [Suspect]
     Indication: DRUG USE FOR UNKNOWN INDICATION
     Dosage: 500 MG; ORAL
     Route: 048
     Dates: start: 20080113, end: 20080113
  2. DOXYLAMINE SUCCINATE [Suspect]
     Indication: DRUG USE FOR UNKNOWN INDICATION
     Dosage: 250 MG; ORAL
     Route: 048
     Dates: start: 20080113, end: 20080113
  3. ACTRAPID INSULIN NOVO (INSULIN) [Suspect]
     Indication: DRUG USE FOR UNKNOWN INDICATION
     Dosage: 200 IU; SUBCUTANEOUS
     Route: 058
     Dates: start: 20080113, end: 20080113

REACTIONS (4)
  - COMA [None]
  - HYPOGLYCAEMIA [None]
  - MULTIPLE DRUG OVERDOSE INTENTIONAL [None]
  - SUICIDE ATTEMPT [None]
